FAERS Safety Report 9197983 (Version 2)
Quarter: 2013Q2

REPORT INFORMATION
  Report Type: Spontaneous
  Country: AU (occurrence: AU)
  Receive Date: 20130328
  Receipt Date: 20130404
  Transmission Date: 20140414
  Serious: Yes (Death, Hospitalization)
  Sender: FDA-Public Use
  Company Number: AU-B.I. PHARMACEUTICALS,INC./RIDGEFIELD-2013-AU-00385AU

PATIENT
  Age: 91 Year
  Sex: Female

DRUGS (14)
  1. PRADAXA [Suspect]
     Dosage: 220 MG
     Route: 048
  2. ADALAT OROS SR [Concomitant]
     Dosage: 30 MG
     Route: 048
  3. AVANZA [Concomitant]
     Dosage: 15 MG
     Route: 048
  4. CELLUFRESH [Concomitant]
     Dosage: 0.5% (5 MG/ML) 1 DROP PRN
     Route: 031
  5. CRESTOR [Concomitant]
     Dosage: 20 MG
     Route: 048
  6. DILATREND [Concomitant]
     Dosage: 12.5 MG
     Route: 048
  7. FOSAMAX PLUS D-CAL [Concomitant]
     Route: 048
  8. LANOXIN-PG [Concomitant]
     Dosage: 125 MCG
     Route: 048
  9. MICARDIS [Concomitant]
     Dosage: 40 MG
     Route: 048
  10. NEO-B12 [Concomitant]
     Dosage: 1 MG/ML
     Route: 030
  11. OROXINE [Concomitant]
     Dosage: 100 MCG
     Route: 048
  12. PANAMAX [Concomitant]
     Dosage: 500 MG
     Route: 048
  13. XALATAN [Concomitant]
     Dosage: 50 MCG/ML
     Route: 031
  14. ZOLOFT [Concomitant]
     Dosage: 50 MG
     Route: 048

REACTIONS (3)
  - Gangrene [Fatal]
  - Embolism [Unknown]
  - Pain in extremity [Unknown]
